FAERS Safety Report 12428060 (Version 2)
Quarter: 2016Q2

REPORT INFORMATION
  Report Type: Report from Study
  Country: US (occurrence: US)
  Receive Date: 20160602
  Receipt Date: 20160614
  Transmission Date: 20160815
  Serious: Yes (Death, Hospitalization, Other)
  Sender: FDA-Public Use
  Company Number: US-SUN PHARMACEUTICAL INDUSTRIES LTD-2016US-117304

PATIENT
  Age: 66 Year
  Sex: Female

DRUGS (3)
  1. CLOZAPINE. [Suspect]
     Active Substance: CLOZAPINE
     Indication: PRODUCT USED FOR UNKNOWN INDICATION
     Dosage: 50 MG, DAILY
     Route: 065
     Dates: end: 20160517
  2. CLOZAPINE. [Suspect]
     Active Substance: CLOZAPINE
     Indication: PRODUCT USED FOR UNKNOWN INDICATION
     Dosage: 50 MG, DAILY
     Route: 065
     Dates: start: 20160520, end: 20160527
  3. CLOZAPINE. [Suspect]
     Active Substance: CLOZAPINE
     Indication: PRODUCT USED FOR UNKNOWN INDICATION
     Dosage: 400 MG, QD (BED TIME)
     Route: 065
     Dates: end: 20160517

REACTIONS (9)
  - Diarrhoea [Not Recovered/Not Resolved]
  - Respiratory failure [Not Recovered/Not Resolved]
  - Hypotension [Unknown]
  - Clostridium difficile infection [Not Recovered/Not Resolved]
  - Death [Fatal]
  - Neutrophil count increased [Unknown]
  - Sepsis [Not Recovered/Not Resolved]
  - Mental status changes [Unknown]
  - Unresponsive to stimuli [Unknown]

NARRATIVE: CASE EVENT DATE: 20160517
